FAERS Safety Report 23664456 (Version 1)
Quarter: 2024Q1

REPORT INFORMATION
  Report Type: Spontaneous
  Country: US (occurrence: US)
  Receive Date: 20240322
  Receipt Date: 20240322
  Transmission Date: 20240410
  Serious: No
  Sender: FDA-Public Use
  Company Number: US-ASCENDIS PHARMA-2023US003335

PATIENT

DRUGS (2)
  1. SKYTROFA [Suspect]
     Active Substance: LONAPEGSOMATROPIN-TCGD
     Indication: Growth hormone deficiency
     Dosage: 11 MG, ONCE A WEEK
     Route: 058
     Dates: start: 20230911
  2. ANASTROZOLE [Concomitant]
     Active Substance: ANASTROZOLE
     Indication: Epiphyses premature fusion
     Dosage: 1 MILLIGRAM, QD
     Route: 048

REACTIONS (2)
  - Oropharyngeal pain [Unknown]
  - Pyrexia [Unknown]

NARRATIVE: CASE EVENT DATE: 20230910
